FAERS Safety Report 16909842 (Version 2)
Quarter: 2023Q4

REPORT INFORMATION
  Report Type: Spontaneous
  Country: KR (occurrence: KR)
  Receive Date: 20191011
  Receipt Date: 20231221
  Transmission Date: 20240110
  Serious: Yes (Other)
  Sender: FDA-Public Use
  Company Number: KR-BAYER-2019-181452

PATIENT
  Age: 58 Year
  Sex: Male

DRUGS (2)
  1. NEXAVAR [Suspect]
     Active Substance: SORAFENIB
     Indication: Hepatocellular carcinoma
     Dosage: UNK
  2. STIVARGA [Suspect]
     Active Substance: REGORAFENIB
     Indication: Hepatocellular carcinoma
     Dosage: UNK

REACTIONS (9)
  - Metastases to adrenals [None]
  - Metastases to lung [Unknown]
  - Metastasis [Unknown]
  - Musculoskeletal chest pain [Unknown]
  - Myositis [Unknown]
  - Incorrect product administration duration [None]
  - Muscle swelling [None]
  - Muscle hypertrophy [Unknown]
  - Dermatitis [Unknown]
